FAERS Safety Report 8804925 (Version 2)
Quarter: 2012Q4

REPORT INFORMATION
  Report Type: 
  Country: JP (occurrence: JP)
  Receive Date: 20120924
  Receipt Date: 20121001
  Transmission Date: 20130627
  Serious: Yes (Other)
  Sender: FDA-Public Use
  Company Number: JP-ROCHE-1129899

PATIENT
  Age: 62 Year
  Sex: Male
  Weight: 52 kg

DRUGS (2)
  1. PEGINTRON [Suspect]
     Indication: HEPATITIS C
     Route: 065
  2. REBETOL [Suspect]
     Indication: HEPATITIS C
     Route: 065

REACTIONS (2)
  - Retinal artery occlusion [Unknown]
  - Retinal vein occlusion [Unknown]
